FAERS Safety Report 13181924 (Version 2)
Quarter: 2017Q3

REPORT INFORMATION
  Report Type: Spontaneous
  Country: US (occurrence: US)
  Receive Date: 20170202
  Receipt Date: 20170724
  Transmission Date: 20171127
  Serious: No
  Sender: FDA-Public Use
  Company Number: US-IMPAX LABORATORIES, INC-2016-IPXL-02228

PATIENT
  Sex: Male
  Weight: 102 kg

DRUGS (2)
  1. RYTARY [Suspect]
     Active Substance: CARBIDOPA\LEVODOPA
     Indication: PARKINSON^S DISEASE
     Dosage: 61.25/245 MG, 12 CAPSULES (4 IN MORNING, 4 IN AFTERNOON AND 4 AT NIGHT DAILY)
     Route: 048
     Dates: start: 20161112, end: 20161112
  2. ASPIRIN. [Concomitant]
     Active Substance: ASPIRIN
     Indication: PRODUCT USED FOR UNKNOWN INDICATION
     Dosage: UNK
     Route: 065

REACTIONS (4)
  - Retching [Recovered/Resolved]
  - Nausea [Recovered/Resolved]
  - Prescribed overdose [Unknown]
  - Product odour abnormal [Recovered/Resolved]

NARRATIVE: CASE EVENT DATE: 201611
